FAERS Safety Report 23772167 (Version 1)
Quarter: 2024Q2

REPORT INFORMATION
  Report Type: Spontaneous
  Country: US (occurrence: US)
  Receive Date: 20240423
  Receipt Date: 20240423
  Transmission Date: 20240715
  Serious: No
  Sender: FDA-Public Use
  Company Number: US-DRL-USA-LIT/USA/24/0005936

PATIENT
  Age: 28 Year
  Sex: Female

DRUGS (2)
  1. METOPROLOL [Suspect]
     Active Substance: METOPROLOL
     Indication: Prophylaxis
  2. METOPROLOL [Suspect]
     Active Substance: METOPROLOL

REACTIONS (4)
  - Exposure during pregnancy [Recovered/Resolved]
  - Normal newborn [Recovered/Resolved]
  - Pain [Unknown]
  - Haemorrhage [Unknown]
